FAERS Safety Report 25135021 (Version 2)
Quarter: 2025Q1

REPORT INFORMATION
  Report Type: Spontaneous
  Country: US (occurrence: US)
  Receive Date: 20250328
  Receipt Date: 20250328
  Transmission Date: 20250409
  Serious: No
  Sender: SANDOZ
  Company Number: US-SANDOZ-SDZ2025US019469

PATIENT
  Sex: Female

DRUGS (1)
  1. ESTRADIOL [Suspect]
     Active Substance: ESTRADIOL
     Indication: Product used for unknown indication
     Route: 062

REACTIONS (5)
  - Application site erythema [Unknown]
  - Application site pruritus [Unknown]
  - Application site irritation [Unknown]
  - Application site exfoliation [Unknown]
  - Product adhesion issue [Unknown]
